FAERS Safety Report 6738578-5 (Version None)
Quarter: 2010Q2

REPORT INFORMATION
  Report Type: 
  Country: None (occurrence: None)
  Receive Date: 20100524
  Receipt Date: 20100514
  Transmission Date: 20101027
  Serious: Yes (Other)
  Sender: FDA-Public Use
  Company Number: GB-PFIZER INC-2010061865

PATIENT
  Sex: Female

DRUGS (2)
  1. ATORVASTATIN CALCIUM [Suspect]
     Dosage: 40 MG, UNK
     Dates: start: 20100101
  2. TELMISARTAN [Concomitant]
     Dosage: 20 MG, UNK
     Dates: start: 20100301

REACTIONS (1)
  - HEPATOTOXICITY [None]
